FAERS Safety Report 6347597-2 (Version None)
Quarter: 2009Q3

REPORT INFORMATION
  Report Type: 
  Country: None (occurrence: None)
  Receive Date: 20090910
  Receipt Date: 20080421
  Transmission Date: 20100115
  Serious: Yes (Other)
  Sender: FDA-Public Use
  Company Number: US-ROCHE-654415

PATIENT

DRUGS (4)
  1. PYRIMETHAMINE/SULFADOXINE [Suspect]
     Indication: MALARIA PROPHYLAXIS
     Dosage: THE FIRST AND FOURTH MONTHLY SHEETS ALWAYS CONTAINED ACTIVE PYRIMETHAMINE/SULFADOXINE.
     Route: 064
  2. MEBENDAZOLE [Concomitant]
     Dosage: FOR DEWORMING
  3. FOLIC ACID [Concomitant]
  4. IRON [Concomitant]

REACTIONS (1)
  - NEONATAL ASPHYXIA [None]
